FAERS Safety Report 4590127-6 (Version None)
Quarter: 2005Q1

REPORT INFORMATION
  Report Type: 
  Country: None (occurrence: None)
  Receive Date: 20050217
  Receipt Date: 20050204
  Transmission Date: 20050727
  Serious: Yes (Other)
  Sender: FDA-Public Use
  Company Number: 2005020537

PATIENT
  Age: 69 Year
  Sex: Female

DRUGS (1)
  1. BEXTRA [Suspect]
     Indication: ILL-DEFINED DISORDER
     Dosage: ORAL
     Route: 048
     Dates: start: 20041102, end: 20041130

REACTIONS (8)
  - BURNING SENSATION [None]
  - FATIGUE [None]
  - HYPERSENSITIVITY [None]
  - INSOMNIA [None]
  - PRURITUS [None]
  - RASH [None]
  - RESPIRATORY DISORDER [None]
  - SKIN REACTION [None]
